FAERS Safety Report 4692607-1 (Version None)
Quarter: 2005Q2

REPORT INFORMATION
  Report Type: 
  Country: None (occurrence: None)
  Receive Date: 20050617
  Receipt Date: 20050509
  Transmission Date: 20051028
  Serious: Yes (Hospitalization)
  Sender: FDA-Public Use
  Company Number: GBWYE654410MAY05

PATIENT
  Sex: Male

DRUGS (7)
  1. ENBREL [Suspect]
     Indication: RHEUMATOID ARTHRITIS
     Dosage: UNKNOWN
     Route: 058
     Dates: start: 20050301, end: 20050426
  2. INFLIXIMAB [Suspect]
     Route: 065
     Dates: start: 20041101, end: 20050101
  3. PREDNISOLONE [Concomitant]
  4. NAPROXEN [Concomitant]
  5. FOLIC ACID [Concomitant]
  6. METHOTREXATE [Concomitant]
  7. CIMETIDINE [Concomitant]

REACTIONS (2)
  - CONDITION AGGRAVATED [None]
  - TUBERCULOSIS [None]
